FAERS Safety Report 19247949 (Version 1)
Quarter: 2021Q2

REPORT INFORMATION
  Report Type: Report from Study
  Country: GB (occurrence: GB)
  Receive Date: 20210512
  Receipt Date: 20210512
  Transmission Date: 20210717
  Serious: Yes (Other)
  Sender: FDA-Public Use
  Company Number: GB-EMD SERONO-9237048

PATIENT
  Age: 36 Year
  Sex: Female

DRUGS (1)
  1. MAVENCLAD [Suspect]
     Active Substance: CLADRIBINE
     Indication: MULTIPLE SCLEROSIS
     Dosage: FIRST WEEK THERAPY: TWO TABLETS ON DAYS 1 TO 5.
     Route: 048
     Dates: start: 20191028

REACTIONS (2)
  - Hyperthyroidism [Unknown]
  - Diabetes mellitus [Unknown]
